FAERS Safety Report 9563240 (Version 2)
Quarter: 2013Q3

REPORT INFORMATION
  Report Type: Spontaneous
  Country: JP (occurrence: JP)
  Receive Date: 20130927
  Receipt Date: 20130927
  Transmission Date: 20140515
  Serious: Yes (Hospitalization)
  Sender: FDA-Public Use
  Company Number: JP-ABBVIE-13P-087-1148252-00

PATIENT
  Age: 29 Year
  Sex: Male
  Weight: 45.2 kg

DRUGS (6)
  1. HUMIRA [Suspect]
     Indication: CROHN^S DISEASE
     Route: 058
     Dates: start: 20130722, end: 20130722
  2. HUMIRA [Suspect]
  3. HUMIRA [Suspect]
  4. AZATHIOPRINE [Suspect]
     Indication: PRODUCT USED FOR UNKNOWN INDICATION
     Dosage: 25 MG DAILY
     Dates: start: 20130724, end: 20130731
  5. SACCHARATED IRON OXIDE [Suspect]
     Indication: PRODUCT USED FOR UNKNOWN INDICATION
     Dosage: 80 MG DAILY
     Route: 048
     Dates: start: 20130713, end: 20130718
  6. MESALAZINE [Concomitant]
     Indication: PRODUCT USED FOR UNKNOWN INDICATION
     Dosage: 300 MG DAILY
     Dates: start: 20130712

REACTIONS (1)
  - Hepatic function abnormal [Not Recovered/Not Resolved]
